FAERS Safety Report 25077833 (Version 2)
Quarter: 2025Q3

REPORT INFORMATION
  Report Type: Spontaneous
  Country: US (occurrence: US)
  Receive Date: 20250314
  Receipt Date: 20250923
  Transmission Date: 20251021
  Serious: No
  Sender: BRISTOL-MYERS SQUIBB COMPANY
  Company Number: US-BRISTOL-MYERS SQUIBB COMPANY-2025-037949

PATIENT
  Age: 66 Year
  Sex: Male

DRUGS (3)
  1. ORENCIA [Suspect]
     Active Substance: ABATACEPT
     Indication: Rheumatoid arthritis
     Dosage: EVERY 7 DAYS
     Dates: start: 202501
  2. ORENCIA [Suspect]
     Active Substance: ABATACEPT
     Dosage: EVERY 7 DAYS
     Dates: start: 202501
  3. HYRIMOZ [Concomitant]
     Active Substance: ADALIMUMAB-ADAZ
     Indication: Product used for unknown indication

REACTIONS (3)
  - Joint swelling [Unknown]
  - Arthralgia [Unknown]
  - Headache [Unknown]
